FAERS Safety Report 20166522 (Version 2)
Quarter: 2021Q4

REPORT INFORMATION
  Report Type: Spontaneous
  Country: IT (occurrence: IT)
  Receive Date: 20211209
  Receipt Date: 20211223
  Transmission Date: 20220303
  Serious: Yes (Other)
  Sender: FDA-Public Use
  Company Number: IT-TAKEDA-2021TEU008990

PATIENT
  Age: 63 Year
  Sex: Male

DRUGS (4)
  1. MESALAMINE [Suspect]
     Active Substance: MESALAMINE
     Indication: Colitis ulcerative
     Dosage: UNK
     Route: 065
  2. ENANTONE LP [Suspect]
     Active Substance: LEUPROLIDE ACETATE
     Indication: Hormone therapy
     Dosage: UNK
     Route: 065
  3. ENANTONE LP [Suspect]
     Active Substance: LEUPROLIDE ACETATE
     Indication: Prostate cancer
  4. LUPRON DEPOT [Suspect]
     Active Substance: LEUPROLIDE ACETATE
     Indication: Hormone therapy
     Dosage: UNK
     Route: 065

REACTIONS (2)
  - Sexual dysfunction [Unknown]
  - Urinary retention [Not Recovered/Not Resolved]
